FAERS Safety Report 8930156 (Version 2)
Quarter: 2013Q1

REPORT INFORMATION
  Report Type: Spontaneous
  Country: US (occurrence: US)
  Receive Date: 20121128
  Receipt Date: 20130314
  Transmission Date: 20140127
  Serious: No
  Sender: FDA-Public Use
  Company Number: US-INCYTE CORPORATION-2012IN002384

PATIENT
  Age: 48 None
  Sex: Female
  Weight: 80.9 kg

DRUGS (6)
  1. JAKAFI [Suspect]
     Indication: ESSENTIAL THROMBOCYTHAEMIA
     Dosage: 20 MG, BID
     Route: 048
     Dates: start: 20120921, end: 20121226
  2. JAKAFI [Suspect]
     Indication: ABDOMINAL PAIN
  3. HYDREA [Concomitant]
  4. WARFARIN [Concomitant]
  5. PAXIL [Concomitant]
  6. ASA [Concomitant]

REACTIONS (3)
  - Neurological symptom [Recovered/Resolved]
  - Platelet count increased [Unknown]
  - Drug ineffective for unapproved indication [None]
